FAERS Safety Report 9733349 (Version 1)
Quarter: 2013Q4

REPORT INFORMATION
  Report Type: Report from Study
  Country: US (occurrence: US)
  Receive Date: 20131204
  Receipt Date: 20131204
  Transmission Date: 20140711
  Serious: Yes (Hospitalization)
  Sender: FDA-Public Use
  Company Number: US-ROCHE-1308813

PATIENT
  Age: 90 Year
  Sex: Female

DRUGS (8)
  1. LUCENTIS [Suspect]
     Indication: AGE-RELATED MACULAR DEGENERATION
     Route: 031
  2. LUCENTIS [Suspect]
     Indication: MACULAR DEGENERATION
  3. AVASTIN [Suspect]
     Indication: MACULAR DEGENERATION
     Route: 065
  4. FUROSEMIDE [Concomitant]
     Route: 065
  5. DIOVAN [Concomitant]
  6. CARVEDILOL [Concomitant]
     Route: 065
  7. PRAVACHOL [Concomitant]
  8. COUMADIN [Concomitant]

REACTIONS (6)
  - Bronchitis [Unknown]
  - Cardiac failure congestive [Unknown]
  - Visual acuity reduced [Unknown]
  - Ocular vascular disorder [Unknown]
  - Eye haemorrhage [Unknown]
  - Visual impairment [Unknown]
